FAERS Safety Report 19036569 (Version 1)
Quarter: 2021Q1

REPORT INFORMATION
  Report Type: Spontaneous
  Country: US (occurrence: US)
  Receive Date: 20210319
  Receipt Date: 20210319
  Transmission Date: 20210420
  Serious: Yes (Hospitalization)
  Sender: FDA-Public Use
  Company Number: None

PATIENT
  Age: 78 Year
  Sex: Female

DRUGS (7)
  1. ATORVASTATIN [Concomitant]
     Active Substance: ATORVASTATIN
  2. ISOSORB MONO [Concomitant]
     Active Substance: ISOSORBIDE MONONITRATE
  3. GLEEVEC [Suspect]
     Active Substance: IMATINIB MESYLATE
     Indication: ARTERIOSCLEROSIS
     Dosage: 1 UNK DAILY ORAL
     Route: 048
  4. DULOXETINE. [Concomitant]
     Active Substance: DULOXETINE
  5. LORAZEPAM. [Concomitant]
     Active Substance: LORAZEPAM
  6. PANTOPRAZOLE [Concomitant]
     Active Substance: PANTOPRAZOLE
  7. FENTANYL. [Concomitant]
     Active Substance: FENTANYL

REACTIONS (2)
  - Peripheral arterial occlusive disease [None]
  - Leg amputation [None]

NARRATIVE: CASE EVENT DATE: 20210318
